FAERS Safety Report 9804816 (Version 3)
Quarter: 2014Q1

REPORT INFORMATION
  Report Type: Spontaneous
  Country: US (occurrence: US)
  Receive Date: 20140108
  Receipt Date: 20140129
  Transmission Date: 20141002
  Serious: Yes (Hospitalization)
  Sender: FDA-Public Use
  Company Number: US-BAXTER-2014BAX000403

PATIENT
  Age: 60 Year
  Sex: Female

DRUGS (6)
  1. DIANEAL LOW CALCIUM [Suspect]
     Indication: RENAL FAILURE CHRONIC
     Route: 033
     Dates: start: 201305, end: 20131229
  2. DIANEAL LOW CALCIUM [Suspect]
     Route: 033
     Dates: start: 20131230
  3. DIANEAL LOW CALCIUM [Suspect]
     Indication: RENAL FAILURE CHRONIC
     Route: 033
     Dates: start: 201305, end: 20131229
  4. DIANEAL LOW CALCIUM [Suspect]
     Route: 033
     Dates: start: 20131230
  5. EXTRANEAL [Suspect]
     Indication: PERITONEAL DIALYSIS
     Route: 033
  6. EXTRANEAL [Suspect]
     Route: 033
     Dates: start: 20131230

REACTIONS (2)
  - Fluid retention [Unknown]
  - Fluid overload [Recovering/Resolving]
